FAERS Safety Report 25688062 (Version 3)
Quarter: 2025Q4

REPORT INFORMATION
  Report Type: Report from Study
  Country: GB (occurrence: GB)
  Receive Date: 20250817
  Receipt Date: 20251007
  Transmission Date: 20260118
  Serious: Yes (Other)
  Sender: ALEXION PHARMACEUTICALS
  Company Number: GB-ASTRAZENECA-202508GBR010418GB

PATIENT
  Sex: Male

DRUGS (1)
  1. OLAPARIB [Suspect]
     Active Substance: OLAPARIB
     Indication: Metastatic gastric cancer
     Dosage: UNK
     Route: 065

REACTIONS (2)
  - Atrial fibrillation [Unknown]
  - Off label use [Unknown]
